FAERS Safety Report 4351254-1 (Version None)
Quarter: 2004Q2

REPORT INFORMATION
  Report Type: 
  Country: None (occurrence: None)
  Receive Date: 20040430
  Receipt Date: 20040430
  Transmission Date: 20050107
  Serious: No
  Sender: FDA-Public Use
  Company Number: None

PATIENT
  Age: 53 Year
  Sex: Male
  Weight: 110 kg

DRUGS (1)
  1. ZIPRASIDONE [Suspect]
     Indication: SCHIZOPHRENIA
     Dosage: 80 MG BID
     Dates: start: 20040303, end: 20040308

REACTIONS (1)
  - DYSURIA [None]
